FAERS Safety Report 12203372 (Version 2)
Quarter: 2016Q2

REPORT INFORMATION
  Report Type: Spontaneous
  Country: US (occurrence: US)
  Receive Date: 20160323
  Receipt Date: 20160429
  Transmission Date: 20160815
  Serious: Yes (Hospitalization)
  Sender: FDA-Public Use
  Company Number: US-ROCHE-1726579

PATIENT
  Age: 90 Year
  Sex: Female

DRUGS (3)
  1. GAZYVA [Suspect]
     Active Substance: OBINUTUZUMAB
     Route: 042
  2. GAZYVA [Suspect]
     Active Substance: OBINUTUZUMAB
     Indication: CHRONIC LYMPHOCYTIC LEUKAEMIA
     Dosage: FIRST DOSE
     Route: 042
  3. GAZYVA [Suspect]
     Active Substance: OBINUTUZUMAB
     Dosage: FREQUENCY:C1D2
     Route: 042
     Dates: start: 20160308, end: 20160309

REACTIONS (3)
  - Protein total abnormal [Unknown]
  - Blood potassium increased [Unknown]
  - Drug dose omission [Unknown]
